FAERS Safety Report 5530539-7 (Version None)
Quarter: 2007Q4

REPORT INFORMATION
  Report Type: 
  Country: None (occurrence: None)
  Receive Date: 20071130
  Receipt Date: 20071126
  Transmission Date: 20080405
  Serious: Yes (Other)
  Sender: FDA-Public Use
  Company Number: US-JNJFOC-20071109765

PATIENT
  Sex: Male
  Weight: 76.2 kg

DRUGS (3)
  1. TYLENOL (CAPLET) [Suspect]
     Route: 048
  2. TYLENOL (CAPLET) [Suspect]
     Indication: OSTEOARTHRITIS
     Route: 048
  3. FUROSEMIDE [Concomitant]
     Indication: FLUID RETENTION

REACTIONS (5)
  - ERYTHEMA [None]
  - INCORRECT DRUG ADMINISTRATION DURATION [None]
  - INTENTIONAL OVERDOSE [None]
  - OEDEMA PERIPHERAL [None]
  - SEDATION [None]
